FAERS Safety Report 6061672-1 (Version None)
Quarter: 2009Q1

REPORT INFORMATION
  Report Type: 
  Country: None (occurrence: None)
  Receive Date: 20090202
  Receipt Date: 20090122
  Transmission Date: 20090719
  Serious: Yes (Hospitalization)
  Sender: FDA-Public Use
  Company Number: B0556533A

PATIENT
  Age: 64 Year
  Sex: Male

DRUGS (5)
  1. ERYTHROMYCIN [Suspect]
     Dosage: 1G TWICE PER DAY
     Route: 065
  2. METHYLPREDNISOLONE [Suspect]
     Dosage: 16MG TWICE PER DAY
     Route: 065
  3. AMOXICILLIN AND CLAVULANATE POTASSIUM [Suspect]
     Dosage: 1G THREE TIMES PER DAY
     Route: 065
  4. IRBESARTAN [Concomitant]
     Indication: HYPERTENSION
     Dosage: 300MG TWICE PER DAY
     Route: 065
  5. ATENOLOL [Concomitant]
     Indication: HYPERTENSION
     Dosage: 100MG TWICE PER DAY
     Route: 065

REACTIONS (12)
  - ANXIETY [None]
  - DRUG INTERACTION [None]
  - DYSSTASIA [None]
  - EATING DISORDER [None]
  - GAIT DISTURBANCE [None]
  - HALLUCINATION [None]
  - HALLUCINATION, AUDITORY [None]
  - HALLUCINATION, VISUAL [None]
  - HEAD TITUBATION [None]
  - SOMNOLENCE [None]
  - TREMOR [None]
  - URTICARIA [None]
